FAERS Safety Report 24592078 (Version 1)
Quarter: 2024Q4

REPORT INFORMATION
  Report Type: Report from Study
  Country: US (occurrence: US)
  Receive Date: 20241108
  Receipt Date: 20241108
  Transmission Date: 20250115
  Serious: Yes (Hospitalization)
  Sender: GILEAD
  Company Number: US-GILEAD-2024-0693286

PATIENT
  Age: 82 Year
  Sex: Female

DRUGS (11)
  1. AMBRISENTAN [Suspect]
     Active Substance: AMBRISENTAN
     Indication: Pulmonary hypertension
     Dosage: 10 MG, QD
     Route: 065
     Dates: start: 20160906
  2. DULOXETINE [Concomitant]
     Active Substance: DULOXETINE
  3. FERROUS SULFATE [Concomitant]
     Active Substance: FERROUS SULFATE
  4. ACETAMINOPHEN\HYDROCODONE [Concomitant]
     Active Substance: ACETAMINOPHEN\HYDROCODONE
  5. IRON [Concomitant]
     Active Substance: IRON
  6. LEVOTHYROXINE [Concomitant]
     Active Substance: LEVOTHYROXINE
  7. METOPROLOL [Concomitant]
     Active Substance: METOPROLOL
  8. PANTOPRAZOLE [Concomitant]
     Active Substance: PANTOPRAZOLE
  9. PREGABALIN [Concomitant]
     Active Substance: PREGABALIN
  10. ROSUVASTATIN [Concomitant]
     Active Substance: ROSUVASTATIN
  11. SPIRONOLACTONE [Concomitant]
     Active Substance: SPIRONOLACTONE

REACTIONS (1)
  - Full blood count decreased [Unknown]
